FAERS Safety Report 4938807-4 (Version None)
Quarter: 2006Q1

REPORT INFORMATION
  Report Type: 
  Country: None (occurrence: None)
  Receive Date: 20060131
  Receipt Date: 20051201
  Transmission Date: 20060701
  Serious: No
  Sender: FDA-Public Use
  Company Number: 200520423US

PATIENT
  Age: 47 Year
  Sex: Female

DRUGS (4)
  1. KETEK [Suspect]
     Indication: SINUSITIS
     Dosage: 800 MG QD PO
     Route: 048
     Dates: start: 20051130
  2. PANTOPRAZOLE SODIUM [Concomitant]
  3. HYDROXYCHLOROQUINE SULFATE (PLAQUENIL) [Concomitant]
  4. MULTI-VITAMIN [Concomitant]

REACTIONS (2)
  - MIGRAINE [None]
  - NAUSEA [None]
